FAERS Safety Report 5735225-6 (Version None)
Quarter: 2008Q2

REPORT INFORMATION
  Report Type: 
  Country: None (occurrence: None)
  Receive Date: 20080508
  Receipt Date: 20080508
  Transmission Date: 20081010
  Serious: No
  Sender: FDA-Public Use
  Company Number: None

PATIENT
  Age: 36 Year
  Sex: Female
  Weight: 57.1532 kg

DRUGS (2)
  1. CREST PROHEALTH MOUTHWASH PROCTOR + GAMBLE [Suspect]
     Indication: BREATH ODOUR
     Dosage: 1/2 CAP TWICE DAILY PO
     Route: 048
     Dates: start: 20071001, end: 20080513
  2. CREST PROHEALTH MOUTHWASH PROCTOR + GAMBLE [Suspect]
     Indication: DENTAL DISORDER PROPHYLAXIS
     Dosage: 1/2 CAP TWICE DAILY PO
     Route: 048
     Dates: start: 20071001, end: 20080513

REACTIONS (1)
  - TOOTH DISCOLOURATION [None]
